FAERS Safety Report 16669685 (Version 1)
Quarter: 2019Q3

REPORT INFORMATION
  Report Type: Spontaneous
  Country: US (occurrence: US)
  Receive Date: 20190621
  Receipt Date: 20190621
  Transmission Date: 20191004
  Serious: No
  Sender: FDA-Public Use
  Company Number: None

PATIENT
  Age: 67 Year
  Sex: Female

DRUGS (1)
  1. TEMOZOLOMIDE 140MG CAP [Suspect]
     Active Substance: TEMOZOLOMIDE
     Indication: BRAIN NEOPLASM
     Dates: start: 201902

REACTIONS (5)
  - Fatigue [None]
  - Balance disorder [None]
  - Nausea [None]
  - Amnesia [None]
  - Vomiting [None]

NARRATIVE: CASE EVENT DATE: 20190621
